FAERS Safety Report 16218012 (Version 1)
Quarter: 2019Q2

REPORT INFORMATION
  Report Type: Spontaneous
  Country: GB (occurrence: GB)
  Receive Date: 20190419
  Receipt Date: 20190419
  Transmission Date: 20190711
  Serious: Yes (Hospitalization)
  Sender: FDA-Public Use
  Company Number: GB-TEVA-2019-GB-1038871

PATIENT
  Age: 64 Year
  Sex: Female
  Weight: 65 kg

DRUGS (2)
  1. PHENYTOIN SODIUM. [Suspect]
     Active Substance: PHENYTOIN SODIUM
     Indication: EPILEPSY
     Route: 065
  2. PIRITON [Suspect]
     Active Substance: CHLORPHENIRAMINE MALEATE
     Indication: URTICARIA
     Dosage: DOSE INTERVAL 4 DAYS, NUMBER OF SEPARATE DOSAGES 1.
     Route: 048
     Dates: start: 20190111

REACTIONS (9)
  - Hyponatraemia [Unknown]
  - Lethargy [Unknown]
  - Visual impairment [Unknown]
  - Ataxia [Unknown]
  - Nystagmus [Unknown]
  - Drug interaction [Unknown]
  - Balance disorder [Unknown]
  - Toxicity to various agents [Recovered/Resolved]
  - Malaise [Unknown]

NARRATIVE: CASE EVENT DATE: 20190220
